FAERS Safety Report 5604634-8 (Version None)
Quarter: 2008Q1

REPORT INFORMATION
  Report Type: 
  Country: None (occurrence: None)
  Receive Date: 20080124
  Receipt Date: 20080124
  Transmission Date: 20080703
  Serious: Yes (Other)
  Sender: FDA-Public Use
  Company Number: None

PATIENT
  Age: 66 Year
  Sex: Female
  Weight: 57.6068 kg

DRUGS (1)
  1. ACTONEL [Suspect]
     Indication: OSTEOPENIA
     Dosage: 1 ONCE PER WEEK PO
     Route: 048
     Dates: start: 19980501, end: 20070201

REACTIONS (3)
  - DYSPEPSIA [None]
  - DYSPHONIA [None]
  - EROSIVE OESOPHAGITIS [None]
